FAERS Safety Report 25668284 (Version 1)
Quarter: 2025Q3

REPORT INFORMATION
  Report Type: Spontaneous
  Country: US (occurrence: US)
  Receive Date: 20250812
  Receipt Date: 20250812
  Transmission Date: 20251020
  Serious: Yes (Hospitalization, Other)
  Sender: GLENMARK
  Company Number: US-MLMSERVICE-20250723-PI590114-00291-1

PATIENT
  Age: 67 Year
  Sex: Male

DRUGS (5)
  1. FENOFIBRATE [Interacting]
     Active Substance: FENOFIBRATE
     Indication: Hypertriglyceridaemia
     Route: 065
     Dates: start: 2025, end: 202505
  2. FENOFIBRATE [Interacting]
     Active Substance: FENOFIBRATE
     Route: 065
  3. ROSUVASTATIN CALCIUM [Interacting]
     Active Substance: ROSUVASTATIN CALCIUM
     Indication: Peripheral arterial occlusive disease
     Route: 065
     Dates: start: 2025, end: 202507
  4. ROSUVASTATIN CALCIUM [Interacting]
     Active Substance: ROSUVASTATIN CALCIUM
     Indication: Coronary artery disease
  5. ASPIRIN [Concomitant]
     Active Substance: ASPIRIN
     Indication: Product used for unknown indication
     Route: 065

REACTIONS (3)
  - Drug interaction [Recovering/Resolving]
  - Myositis [Recovering/Resolving]
  - Rhabdomyolysis [Recovering/Resolving]

NARRATIVE: CASE EVENT DATE: 20250701
